FAERS Safety Report 5362181-5 (Version None)
Quarter: 2007Q2

REPORT INFORMATION
  Report Type: 
  Country: None (occurrence: None)
  Receive Date: 20070530
  Receipt Date: 20070309
  Transmission Date: 20071010
  Serious: No
  Sender: FDA-Public Use
  Company Number: 2007PV031407

PATIENT
  Age: 61 Year
  Sex: Female
  Weight: 87.5442 kg

DRUGS (3)
  1. BYETTA [Suspect]
     Indication: DIABETES MELLITUS NON-INSULIN-DEPENDENT
     Dosage: 5 MCG; BID; SC, 5 MCG; BID; SC
     Route: 058
     Dates: start: 20070215, end: 20070223
  2. BYETTA [Suspect]
     Indication: DIABETES MELLITUS NON-INSULIN-DEPENDENT
     Dosage: 5 MCG; BID; SC, 5 MCG; BID; SC
     Route: 058
     Dates: start: 20070302
  3. METFORMIN HCL [Concomitant]

REACTIONS (2)
  - HAEMORRHAGE URINARY TRACT [None]
  - RECTAL HAEMORRHAGE [None]
